FAERS Safety Report 4295042-3 (Version None)
Quarter: 2004Q1

REPORT INFORMATION
  Report Type: 
  Country: None (occurrence: None)
  Receive Date: 20040213
  Receipt Date: 20040129
  Transmission Date: 20041129
  Serious: Yes (Death)
  Sender: FDA-Public Use
  Company Number: 2004S1000020

PATIENT
  Age: 83 Year
  Sex: Female

DRUGS (17)
  1. CLOZAPINE [Suspect]
     Indication: SCHIZOPHRENIA
     Dosage: 6.25 MG QD, ORAL
     Route: 048
     Dates: start: 20030915, end: 20031109
  2. WARFARIN SODIUM [Concomitant]
  3. LOSARTAN [Concomitant]
  4. VITAMIN B-12 [Concomitant]
  5. FENTANYL [Concomitant]
  6. ISOSORBIDE MONONITRATE ER [Concomitant]
  7. LEVOTHYROXINE SODIUM [Concomitant]
  8. ZINC SULFATE [Concomitant]
  9. DHEA SR [Concomitant]
  10. VITAMIN C [Concomitant]
  11. VITAMIN B COMPLEX CAP [Concomitant]
  12. ACYCLOVIR OINTMENT [Concomitant]
  13. LANSOPRAZOLE [Concomitant]
  14. ACETAMINOPHEN [Concomitant]
  15. BETAMETHASONE/CLOTRIMAZOLE CREAM [Concomitant]
  16. CARVEDILOL [Concomitant]
  17. CALCITONIN SALMON NASAL SPRAY [Concomitant]

REACTIONS (1)
  - DEATH [None]
